FAERS Safety Report 4597173-7 (Version None)
Quarter: 2005Q1

REPORT INFORMATION
  Report Type: 
  Country: None (occurrence: None)
  Receive Date: 20050224
  Receipt Date: 20050207
  Transmission Date: 20050727
  Serious: Yes (Other)
  Sender: FDA-Public Use
  Company Number: 601828

PATIENT
  Age: 59 Year
  Sex: Female

DRUGS (6)
  1. TISSEEL VH KIT [Suspect]
     Indication: PLASTIC SURGERY TO THE FACE
     Dosage: 4 ML; ONCE; TOPICAL
     Route: 061
     Dates: start: 20050119, end: 20050119
  2. ACETYLSALICYLIC ACID [Concomitant]
  3. HORMONES [Concomitant]
  4. VITAMIN B COMPLEX CAP [Concomitant]
  5. VITAMIN C [Concomitant]
  6. CALCIUM GLUCONATE [Concomitant]

REACTIONS (3)
  - POSTOPERATIVE INFECTION [None]
  - STAPHYLOCOCCAL INFECTION [None]
  - SUBCUTANEOUS ABSCESS [None]
